FAERS Safety Report 9388815 (Version 1)
Quarter: 2013Q3

REPORT INFORMATION
  Report Type: Spontaneous
  Country: US (occurrence: US)
  Receive Date: 20130708
  Receipt Date: 20130708
  Transmission Date: 20140515
  Serious: Yes (Hospitalization)
  Sender: FDA-Public Use
  Company Number: PHHY2013US071096

PATIENT
  Age: 47 Year
  Sex: Female

DRUGS (1)
  1. TIZANIDINE [Suspect]

REACTIONS (5)
  - Hypokalaemia [Recovered/Resolved]
  - Electrocardiogram QT prolonged [Recovered/Resolved]
  - Sinus tachycardia [Unknown]
  - Metabolic acidosis [Recovered/Resolved]
  - Unresponsive to stimuli [Unknown]
